FAERS Safety Report 6699556-8 (Version None)
Quarter: 2010Q2

REPORT INFORMATION
  Report Type: 
  Country: None (occurrence: None)
  Receive Date: 20100427
  Receipt Date: 20100427
  Transmission Date: 20101027
  Serious: Yes (Other)
  Sender: FDA-Public Use
  Company Number: None

PATIENT
  Age: 27 Year
  Sex: Female
  Weight: 77.3 kg

DRUGS (1)
  1. TOPIRAMATE [Suspect]
     Indication: MIGRAINE
     Dosage: 25 MG T1QHSK1WK ORAL
     Route: 048
     Dates: start: 20060421, end: 20060505

REACTIONS (3)
  - ANGLE CLOSURE GLAUCOMA [None]
  - MYOPIA [None]
  - VISION BLURRED [None]
